FAERS Safety Report 4437195-X (Version None)
Quarter: 2004Q3

REPORT INFORMATION
  Report Type: 
  Country: None (occurrence: None)
  Receive Date: 20040726
  Receipt Date: 20040405
  Transmission Date: 20050211
  Serious: No
  Sender: FDA-Public Use
  Company Number: USA040360902

PATIENT
  Age: 79 Year
  Sex: Female
  Weight: 58 kg

DRUGS (2)
  1. FORTEO [Suspect]
     Indication: OSTEOPOROSIS
     Dosage: 20 UG/1 DAY
     Dates: start: 20040202
  2. PREVACID [Concomitant]

REACTIONS (14)
  - ARTHRALGIA [None]
  - BACK PAIN [None]
  - DYSPEPSIA [None]
  - FEELING ABNORMAL [None]
  - GASTROOESOPHAGEAL REFLUX DISEASE [None]
  - INJECTION SITE ERYTHEMA [None]
  - INJECTION SITE HAEMORRHAGE [None]
  - INSOMNIA [None]
  - NECK PAIN [None]
  - RASH GENERALISED [None]
  - RASH MACULAR [None]
  - SENSATION OF FOREIGN BODY [None]
  - WEIGHT DECREASED [None]
  - WEIGHT INCREASED [None]
